FAERS Safety Report 15229721 (Version 1)
Quarter: 2018Q3

REPORT INFORMATION
  Report Type: Spontaneous
  Country: US (occurrence: US)
  Receive Date: 20180802
  Receipt Date: 20180802
  Transmission Date: 20181010
  Serious: Yes (Other)
  Sender: FDA-Public Use
  Company Number: US-ACCORD-061788

PATIENT
  Age: 39 Year
  Sex: Female
  Weight: 47.63 kg

DRUGS (26)
  1. DOCETAXEL ACCORD [Suspect]
     Active Substance: DOCETAXEL
     Indication: BREAST CANCER
     Dosage: 110 MG (AT 75 MG/M2) (OF 80 MG/8 ML) DAILY IV RIDER OVER 60 MIN FOR 1 DAY IN NS 250 ML
     Route: 042
     Dates: start: 20141209, end: 20150302
  2. EMLA [Concomitant]
     Active Substance: LIDOCAINE\PRILOCAINE
     Route: 061
     Dates: start: 20141126, end: 20160919
  3. PANTOPRAZOLE [Concomitant]
     Active Substance: PANTOPRAZOLE
     Dosage: 1 TABLET (OF 20 MG)
     Route: 048
     Dates: start: 20141222, end: 20150706
  4. AMOXICILLIN/CLAVULANIC ACID [Concomitant]
     Dosage: 1 (875?125 MG) TABLET ORAL BID
     Route: 048
     Dates: end: 20160229
  5. FOSAPREPITANT DIMEGLUMINE. [Concomitant]
     Active Substance: FOSAPREPITANT DIMEGLUMINE
     Dosage: 150 MG INJECTION DAILY IV RIDER OVER 30 MIN FOR 1 DAY IN NS 250 ML AT THE RATE OF 500 ML/HR
     Route: 042
     Dates: start: 20141209, end: 20150302
  6. PROCHLORPERAZINE. [Concomitant]
     Active Substance: PROCHLORPERAZINE
     Dosage: 1 (10 MG) TABLET ORAL Q 6 HOURS PRN
     Route: 048
     Dates: start: 20141126, end: 20150413
  7. SODIUM CHLORIDE. [Concomitant]
     Active Substance: SODIUM CHLORIDE
     Dosage: 500 ML INJECTION DAILY IV RIDER OVER 1 HOURS FOR 1 DAY
     Dates: start: 20141230, end: 20150302
  8. CHIA SEED OIL EXTRACT [Concomitant]
     Dosage: 1 TABLET (OF 1000 MG) DAILY
     Route: 048
  9. MELATONIN [Concomitant]
     Active Substance: MELATONIN
     Dosage: ORAL AT BEDTIME
     Route: 048
  10. CURCUMA LONGA [Concomitant]
     Active Substance: HERBALS\TURMERIC
  11. BETA GLUCAN POWDER [Concomitant]
  12. HERCEPTIN [Suspect]
     Active Substance: TRASTUZUMAB
     Indication: BREAST CANCER
     Dosage: 360 MG (AT 8 MG/KG) DAILY IV RIDER OVER 90 MINUTES FOR 1 DAY IN NS 250 ML AT THE RATE OF 178 ML/HR
     Route: 042
     Dates: start: 20141209, end: 20150323
  13. GLUCOSE [Concomitant]
     Active Substance: DEXTROSE
     Dosage: 500 ML (OF 5?0.9%) DAILY CONTINUOUS OVER 1 HOURS FOR 1 DAY
     Route: 042
     Dates: start: 20141215, end: 20141215
  14. LORAZEPAM. [Concomitant]
     Active Substance: LORAZEPAM
     Dosage: 0.25 MG?1 MG (OF 2 MG/ML) INTRAVENOUS DAILY PUSH OVER 2 MINUTES FOR 1 DAY
     Route: 042
     Dates: start: 20141209, end: 20150302
  15. COQ10 [Concomitant]
     Active Substance: UBIDECARENONE
     Route: 048
  16. DIPHENHYDRAMINE. [Concomitant]
     Active Substance: DIPHENHYDRAMINE
     Dosage: 25 MG (OF 50 MG/ML) INTRAVENOUS DAILY IV RIDER OVER 16 MINUTES FOR 1 DAY IN NS 100 ML
     Route: 042
     Dates: start: 20141209, end: 20150302
  17. LINUM USITATISSIMUM [Concomitant]
     Route: 048
  18. OMEGA?3 TRIGLYCERIDES [Concomitant]
     Route: 048
     Dates: end: 20150119
  19. BARLEY GRASS POWDER [Concomitant]
     Dosage: PRN
  20. PARAPLATIN [Suspect]
     Active Substance: CARBOPLATIN
     Indication: BREAST CANCER
     Dosage: 600 MG (AT 6 AUC) (OF 600 MG/60 ML) INTRAVENOUS DAILY IV RIDER OVER 30 MINUTES FOR 1 DAY
     Route: 042
     Dates: start: 20141209, end: 20150302
  21. DEXAMETHASONE. [Concomitant]
     Active Substance: DEXAMETHASONE
     Route: 048
     Dates: start: 20141126, end: 20160413
  22. PALONOSETRON. [Concomitant]
     Active Substance: PALONOSETRON HYDROCHLORIDE
     Dosage: 0.25 MG (OF 0.25 MG/ 5 ML) DAILY IV RIDER OVER 16 MIN FOR 1 DAY IN NS 100 ML AT RATE OF 398 ML/HR
     Route: 042
     Dates: start: 20141209, end: 20150302
  23. NEULASTA [Concomitant]
     Active Substance: PEGFILGRASTIM
     Dosage: STRENGTH: 6 MG?6 MG SUBCUTANEOUS DAILY FOR 1 DAY
     Route: 058
     Dates: start: 20141210, end: 20150303
  24. COLECALCIFEROL [Concomitant]
     Active Substance: CHOLECALCIFEROL
     Dosage: 1 TABLET (OF 4000 IU)
     Route: 048
  25. TOCOPHEROL [Concomitant]
     Active Substance: TOCOPHEROL
     Dosage: 1 TABLET (OF 400 UNITS)
     Route: 048
  26. WHEAT GRASS POWDER [Concomitant]
     Dosage: PRN

REACTIONS (3)
  - Hair colour changes [Not Recovered/Not Resolved]
  - Hair texture abnormal [Not Recovered/Not Resolved]
  - Alopecia [Not Recovered/Not Resolved]

NARRATIVE: CASE EVENT DATE: 20150301
